FAERS Safety Report 4950950-2 (Version None)
Quarter: 2006Q1

REPORT INFORMATION
  Report Type: 
  Country: None (occurrence: None)
  Receive Date: 20060316
  Receipt Date: 20060227
  Transmission Date: 20060701
  Serious: Yes (Hospitalization)
  Sender: FDA-Public Use
  Company Number: DSA_27835_2006

PATIENT
  Age: 38 Year
  Sex: Female

DRUGS (3)
  1. TAVOR [Suspect]
     Dosage: 100 MG ONCE PO
     Route: 048
     Dates: start: 20060225, end: 20060225
  2. FLUCTIN [Suspect]
     Dosage: 1000 MG ONCE PO
     Route: 048
     Dates: start: 20060225, end: 20060225
  3. JATROSOM [Suspect]
     Dosage: 450 MG ONCE PO
     Route: 048
     Dates: start: 20060225, end: 20060225

REACTIONS (3)
  - BRADYCARDIA [None]
  - MULTIPLE DRUG OVERDOSE INTENTIONAL [None]
  - SUICIDE ATTEMPT [None]
